FAERS Safety Report 4342008-0 (Version None)
Quarter: 2004Q1

REPORT INFORMATION
  Report Type: 
  Country: None (occurrence: None)
  Receive Date: 20040329
  Receipt Date: 20031211
  Transmission Date: 20041129
  Serious: No
  Sender: FDA-Public Use
  Company Number: 03P-163-0244329-00

PATIENT
  Age: 45 Year
  Sex: Male

DRUGS (10)
  1. HUMIRA [Suspect]
     Indication: RHEUMATOID ARTHRITIS
     Dosage: 40 MG, 1 IN 2 WK, INJECTION
     Dates: start: 20030801
  2. LISINOPRIL [Concomitant]
  3. ATORVASTATIN [Concomitant]
  4. FLUTICASONE PROPIONATE [Concomitant]
  5. ALBUTEROL SULFATE [Concomitant]
  6. SALBUTAMOL SULFATE [Concomitant]
  7. ADVENT [Concomitant]
  8. PHENYTOIN SODIUM [Concomitant]
  9. PANTOPRAZOLE [Concomitant]
  10. PHENOBARBITAL TAB [Concomitant]

REACTIONS (3)
  - NAUSEA [None]
  - PAIN [None]
  - PYREXIA [None]
